FAERS Safety Report 24394039 (Version 1)
Quarter: 2024Q4

REPORT INFORMATION
  Report Type: Spontaneous
  Country: US (occurrence: US)
  Receive Date: 20241003
  Receipt Date: 20241003
  Transmission Date: 20250115
  Serious: Yes (Hospitalization, Other)
  Sender: TAKEDA
  Company Number: US-TAKEDA-2024TUS095566

PATIENT
  Age: 63 Year
  Sex: Female

DRUGS (1)
  1. HUMAN IMMUNOGLOBULIN G [Suspect]
     Active Substance: HUMAN IMMUNOGLOBULIN G
     Indication: Cold type haemolytic anaemia
     Dosage: UNK
     Route: 042

REACTIONS (4)
  - Pulseless electrical activity [Unknown]
  - Hypoxia [Unknown]
  - Bradycardia [Unknown]
  - Product use in unapproved indication [Unknown]
